FAERS Safety Report 13554983 (Version 1)
Quarter: 2017Q2

REPORT INFORMATION
  Report Type: Spontaneous
  Country: US (occurrence: US)
  Receive Date: 20170516
  Receipt Date: 20170516
  Transmission Date: 20170830
  Serious: Yes (Hospitalization)
  Sender: FDA-Public Use
  Company Number: None

PATIENT
  Age: 66 Year
  Sex: Male
  Weight: 108.5 kg

DRUGS (1)
  1. VANCOMYCIN [Suspect]
     Active Substance: VANCOMYCIN
     Indication: INFECTION PROPHYLAXIS
     Dates: start: 20160115, end: 20160219

REACTIONS (6)
  - Rash maculo-papular [None]
  - Drug reaction with eosinophilia and systemic symptoms [None]
  - Rash generalised [None]
  - Eosinophilia [None]
  - Rash pruritic [None]
  - Pyrexia [None]

NARRATIVE: CASE EVENT DATE: 20160215
